FAERS Safety Report 14761764 (Version 1)
Quarter: 2018Q2

REPORT INFORMATION
  Report Type: Spontaneous
  Country: US (occurrence: US)
  Receive Date: 20180416
  Receipt Date: 20180416
  Transmission Date: 20180711
  Serious: No
  Sender: FDA-Public Use
  Company Number: PHEH2018US013561

PATIENT
  Sex: Male

DRUGS (4)
  1. TACROLIMUS. [Suspect]
     Active Substance: TACROLIMUS
     Indication: VITILIGO
     Dosage: UNK
     Route: 061
  2. CLOBETASOL [Suspect]
     Active Substance: CLOBETASOL
     Indication: SKIN DEPIGMENTATION
  3. TACROLIMUS. [Suspect]
     Active Substance: TACROLIMUS
     Indication: SKIN DEPIGMENTATION
  4. CLOBETASOL [Suspect]
     Active Substance: CLOBETASOL
     Indication: VITILIGO
     Dosage: UNK
     Route: 061

REACTIONS (1)
  - Therapy non-responder [Unknown]
